FAERS Safety Report 17732941 (Version 1)
Quarter: 2020Q2

REPORT INFORMATION
  Report Type: Spontaneous
  Country: US (occurrence: US)
  Receive Date: 20200429
  Receipt Date: 20200429
  Transmission Date: 20200714
  Serious: Yes (Life-Threatening, Hospitalization)
  Sender: FDA-Public Use
  Company Number: None

PATIENT
  Age: 42 Year
  Sex: Male
  Weight: 79.65 kg

DRUGS (9)
  1. FINASTERIDE PLUS 1.25MG [Suspect]
     Active Substance: FINASTERIDE
     Indication: ALOPECIA
     Dosage: ?          QUANTITY:1 DF DOSAGE FORM;?
     Route: 048
  2. METOPROLOL. [Concomitant]
     Active Substance: METOPROLOL
  3. MINOXIDIL. [Suspect]
     Active Substance: MINOXIDIL
  4. VITAMIN D3 [Concomitant]
     Active Substance: CHOLECALCIFEROL
  5. TRESIBA [Concomitant]
     Active Substance: INSULIN DEGLUDEC
  6. VALSARTAN. [Concomitant]
     Active Substance: VALSARTAN
  7. MULTIVITAMIN [Concomitant]
     Active Substance: VITAMINS
  8. OZEMPIC [Concomitant]
     Active Substance: SEMAGLUTIDE
  9. K2 [Concomitant]
     Active Substance: JWH-018

REACTIONS (6)
  - Decreased appetite [None]
  - Altered state of consciousness [None]
  - Heart rate increased [None]
  - Product contamination [None]
  - Acute kidney injury [None]
  - Pyrexia [None]

NARRATIVE: CASE EVENT DATE: 20200214
